FAERS Safety Report 11552306 (Version 3)
Quarter: 2015Q4

REPORT INFORMATION
  Report Type: Spontaneous
  Country: JP (occurrence: JP)
  Receive Date: 20150925
  Receipt Date: 20151020
  Transmission Date: 20160304
  Serious: Yes (Other)
  Sender: FDA-Public Use
  Company Number: JP-009507513-1509JPN012141

PATIENT

DRUGS (13)
  1. FLUOROURACIL. [Concomitant]
     Active Substance: FLUOROURACIL
     Dosage: ON DAYS 1,2,3,4 AND 5 (750 MG/M2)
  2. GRANISETRON [Concomitant]
     Active Substance: GRANISETRON
     Indication: PRODUCT USED FOR UNKNOWN INDICATION
     Dosage: ON DAY 4 (1 MG)
     Route: 065
  3. MK-0000 [Suspect]
     Active Substance: INVESTIGATIONAL PRODUCT
     Dosage: 9 MG, 1 DAY (ON DAY 1,2,3,4,5,6 AND 7. TOTAL DOSE: 69.3 OR 75.9MG)
     Route: 065
  4. DEXART [Suspect]
     Active Substance: DEXAMETHASONE SODIUM PHOSPHATE
     Dosage: ON DAY 2,3 AND 4 (6 MG, 1D)
  5. DOCETAXEL. [Concomitant]
     Active Substance: DOCETAXEL
     Indication: CHEMOTHERAPY
     Dosage: 60 MG/M2, ON DAY 4
     Route: 065
  6. GRANISETRON [Concomitant]
     Active Substance: GRANISETRON
     Dosage: ON DAY 1 (1 MG)
     Route: 065
  7. MK-0000 [Suspect]
     Active Substance: INVESTIGATIONAL PRODUCT
     Dosage: 6 MG, 1 DAY (ON DAY 2,3 AND 4)
     Route: 065
  8. FLUOROURACIL. [Concomitant]
     Active Substance: FLUOROURACIL
     Indication: CHEMOTHERAPY
     Dosage: ON DAYS 1,2,3,4 AND 5 (1000 MG)
     Route: 065
  9. CISPLATIN. [Concomitant]
     Active Substance: CISPLATIN
     Dosage: 70 MG/M2, ON DAY 1
     Route: 065
  10. DEXART [Suspect]
     Active Substance: DEXAMETHASONE SODIUM PHOSPHATE
     Indication: PROPHYLAXIS OF NAUSEA AND VOMITING
     Dosage: ON DAY 1,2,3,4,5,6 AND 7. TOTAL DOSE: 69.3 OR 75.9 MG (9MG 1D)
     Route: 065
  11. DOCETAXEL. [Concomitant]
     Active Substance: DOCETAXEL
     Dosage: ON DAY 1 (60 MG/M2)
  12. CISPLATIN. [Concomitant]
     Active Substance: CISPLATIN
     Indication: CHEMOTHERAPY
     Dosage: 70 MG/M2, ON DAY 4
     Route: 065
  13. SODIUM (UNSPECIFIED) [Concomitant]
     Indication: PRODUCT USED FOR UNKNOWN INDICATION
     Route: 065

REACTIONS (1)
  - Adrenal disorder [Unknown]
